FAERS Safety Report 19804820 (Version 1)
Quarter: 2021Q3

REPORT INFORMATION
  Report Type: Spontaneous
  Country: CA (occurrence: CA)
  Receive Date: 20210908
  Receipt Date: 20210908
  Transmission Date: 20211014
  Serious: Yes (Other)
  Sender: FDA-Public Use
  Company Number: CA-PFIZER INC-202101151990

PATIENT
  Age: 59 Year
  Sex: Female

DRUGS (3)
  1. DAPSONE. [Suspect]
     Active Substance: DAPSONE
  2. QUINACRINE [MEPACRINE] [Suspect]
     Active Substance: QUINACRINE
  3. METHOTREXATE SODIUM. [Suspect]
     Active Substance: METHOTREXATE SODIUM
     Dosage: 1 DF, UNK START, STOP DATES, DOSE AND FREQ
     Route: 065

REACTIONS (4)
  - Drug intolerance [Unknown]
  - Drug ineffective [Unknown]
  - Cutaneous lupus erythematosus [Unknown]
  - Osteonecrosis [Unknown]
